FAERS Safety Report 17842670 (Version 1)
Quarter: 2020Q2

REPORT INFORMATION
  Report Type: Spontaneous
  Country: CA (occurrence: CA)
  Receive Date: 20200529
  Receipt Date: 20200529
  Transmission Date: 20200714
  Serious: Yes (Other)
  Sender: FDA-Public Use
  Company Number: CA-BAXTER-2020BAX010768

PATIENT
  Age: 67 Year
  Sex: Female

DRUGS (2)
  1. TROMBOJECT [Concomitant]
     Indication: PRODUCT USED FOR UNKNOWN INDICATION
     Dosage: DOSAGE FORM: SOLUTION INTRAVENOUS
     Route: 065
  2. 0.9% SODIUM CHLORIDE INJECTION [Suspect]
     Active Substance: SODIUM CHLORIDE
     Indication: VEHICLE SOLUTION USE
     Dosage: DOSAGE FORM: SOLUTION INTRAVENOUS
     Route: 042

REACTIONS (5)
  - Necrotising soft tissue infection [Recovered/Resolved]
  - Injection site swelling [Recovered/Resolved]
  - Paraesthesia [Recovered/Resolved]
  - Product odour abnormal [Recovered/Resolved]
  - Injection site pain [Recovered/Resolved]
